FAERS Safety Report 4946495-6 (Version None)
Quarter: 2006Q1

REPORT INFORMATION
  Report Type: 
  Country: None (occurrence: None)
  Receive Date: 20060314
  Receipt Date: 20060227
  Transmission Date: 20060701
  Serious: Yes (Other)
  Sender: FDA-Public Use
  Company Number: US-2006-005078

PATIENT
  Age: 72 Year
  Sex: Female
  Weight: 63 kg

DRUGS (12)
  1. BETASERON [Suspect]
     Indication: PROGRESSIVE MULTIPLE SCLEROSIS
     Dosage: SEE IMAGE
     Route: 058
     Dates: start: 20041216, end: 20060101
  2. DITROPAN /USA/ (OXYBUTYNIN) [Concomitant]
  3. ZETIA (EZETIMIBE SODIUM) [Concomitant]
  4. FOSAMAX [Concomitant]
  5. METAMUCIL (PLANTAGO OVATA) CAPSULE [Concomitant]
  6. MULTIVITAMINS (RETINOL, PANTHENOL) [Concomitant]
  7. DOCUSATE SODIUM (DOCUSATE SODIUM) [Concomitant]
  8. OS-CA (CALCIUM) [Concomitant]
  9. FERROUS SULFATE TAB [Concomitant]
  10. VITAMIN B-12 [Concomitant]
  11. DARVACOT-N (DEXTROPROPOXYPHENE NAPSILATE) [Concomitant]
  12. TUMS [Concomitant]

REACTIONS (4)
  - ASTHENIA [None]
  - ATRIOVENTRICULAR BLOCK FIRST DEGREE [None]
  - BLOOD CREATINE PHOSPHOKINASE MB INCREASED [None]
  - COGNITIVE DISORDER [None]
